FAERS Safety Report 5680912-1 (Version None)
Quarter: 2008Q1

REPORT INFORMATION
  Report Type: 
  Country: None (occurrence: None)
  Receive Date: 20080325
  Receipt Date: 20080314
  Transmission Date: 20080703
  Serious: Yes (Hospitalization)
  Sender: FDA-Public Use
  Company Number: CLOF-10542

PATIENT
  Age: 71 Year
  Sex: Female

DRUGS (7)
  1. CLOFARABINE (CLOFARABINE) 30MG/M2 [Suspect]
     Indication: MYELOID LEUKAEMIA
     Dosage: 54.6 MG, QDX5; INTRAVENOUS, 36.2 MG, QDX5, INTRAVENOUS
     Route: 042
     Dates: start: 20070302, end: 20070306
  2. CLOFARABINE (CLOFARABINE) 30MG/M2 [Suspect]
     Indication: MYELOID LEUKAEMIA
     Dosage: 54.6 MG, QDX5; INTRAVENOUS, 36.2 MG, QDX5, INTRAVENOUS
     Route: 042
     Dates: start: 20070403, end: 20070407
  3. METFORMIN HCL [Concomitant]
  4. NOVOLOG [Concomitant]
  5. IMIDUR (ISOSORBIDE MONONITRATE) [Concomitant]
  6. LISNOPRIL (LISINOPRIL) [Concomitant]
  7. ACYCLOVIR [Concomitant]

REACTIONS (4)
  - BONE MARROW FAILURE [None]
  - PANCYTOPENIA [None]
  - RENAL FAILURE [None]
  - TRACHEOBRONCHITIS [None]
